FAERS Safety Report 4610112-5 (Version None)
Quarter: 2005Q1

REPORT INFORMATION
  Report Type: 
  Country: None (occurrence: None)
  Receive Date: 20050314
  Receipt Date: 20040709
  Transmission Date: 20050727
  Serious: Yes (Hospitalization)
  Sender: FDA-Public Use
  Company Number: 8457

PATIENT
  Age: 62 Year
  Sex: Female

DRUGS (3)
  1. FLUOROURACIL [Suspect]
     Indication: COLON CANCER
     Dosage: 1620 MG PER_CYCLE
     Route: 042
     Dates: start: 20010422
  2. CALCIUM FOLINATE [Suspect]
     Indication: COLON CANCER
     Dosage: 320 MG PER_CYCLE
     Route: 042
     Dates: start: 20010422, end: 20010712
  3. IRINOTECAN HCL [Suspect]
     Indication: COLON CANCER
     Dosage: 288 MG PER_CYCLE
     Route: 042
     Dates: start: 20010422, end: 20010712

REACTIONS (1)
  - PULMONARY FIBROSIS [None]
